FAERS Safety Report 6502477-4 (Version None)
Quarter: 2009Q4

REPORT INFORMATION
  Report Type: 
  Country: None (occurrence: None)
  Receive Date: 20091209
  Receipt Date: 20091208
  Transmission Date: 20100525
  Serious: Yes (Hospitalization, Other)
  Sender: FDA-Public Use
  Company Number: WAES 0907USA00200

PATIENT
  Age: 76 Year
  Sex: Male

DRUGS (5)
  1. ZOCOR [Suspect]
     Indication: ACUTE CORONARY SYNDROME
     Dosage: 40 MG/DAILY PO
     Route: 048
     Dates: start: 20061011, end: 20090511
  2. TAB PLACEBO (UNSPECIFIED) [Suspect]
     Indication: ACUTE CORONARY SYNDROME
     Dosage: PO
     Route: 048
     Dates: start: 20061011, end: 20090511
  3. ASPIRIN [Suspect]
     Dosage: 75 MG/DAILY PO
     Route: 048
     Dates: start: 20061008
  4. CANDESARTAN CILEXETIL [Concomitant]
  5. METHOTREXATE [Concomitant]

REACTIONS (7)
  - BLOOD CREATININE INCREASED [None]
  - BLOOD LACTATE DEHYDROGENASE INCREASED [None]
  - DIZZINESS [None]
  - GASTRIC ULCER [None]
  - HAEMOGLOBIN DECREASED [None]
  - LYMPHOMA [None]
  - RESPIRATORY FAILURE [None]
